FAERS Safety Report 23021300 (Version 2)
Quarter: 2023Q4

REPORT INFORMATION
  Report Type: Report from Study
  Country: US (occurrence: US)
  Receive Date: 20231003
  Receipt Date: 20231205
  Transmission Date: 20240109
  Serious: No
  Sender: FDA-Public Use
  Company Number: US-002147023-NVSC2023US209810

PATIENT
  Age: 34 Year
  Sex: Male

DRUGS (1)
  1. VIJOICE [Suspect]
     Active Substance: ALPELISIB
     Indication: PIK3CA related overgrowth spectrum
     Dosage: 250 MG, QD
     Route: 048
     Dates: start: 20230821

REACTIONS (5)
  - Feeling abnormal [Recovering/Resolving]
  - Eating disorder [Recovering/Resolving]
  - Fatigue [Recovering/Resolving]
  - Brain fog [Unknown]
  - Drug ineffective [Unknown]

NARRATIVE: CASE EVENT DATE: 20230821
